FAERS Safety Report 12105005 (Version 1)
Quarter: 2016Q1

REPORT INFORMATION
  Report Type: Spontaneous
  Country: DK (occurrence: DK)
  Receive Date: 20160223
  Receipt Date: 20160223
  Transmission Date: 20160526
  Serious: Yes (Hospitalization)
  Sender: FDA-Public Use
  Company Number: DK-TOLMAR, INC.-2016DK001579

PATIENT
  Age: 69 Year
  Sex: Male
  Weight: 100 kg

DRUGS (7)
  1. METFORMIN ACTAVIS [Concomitant]
     Active Substance: METFORMIN HYDROCHLORIDE
     Route: 065
  2. LISINOPRIL. [Concomitant]
     Active Substance: LISINOPRIL
     Route: 065
  3. ANDROCUR [Suspect]
     Active Substance: CYPROTERONE ACETATE
     Indication: PROSTATE CANCER
     Dosage: 50 MG, TWICE DAILY
     Route: 048
  4. IBUMETIN [Suspect]
     Active Substance: IBUPROFEN
     Indication: PAIN
     Dosage: 600 MG,(PN 0-3 PIECES), UNK
     Route: 048
     Dates: end: 20160201
  5. SIMVASTATIN ACTAVIS [Concomitant]
     Active Substance: SIMVASTATIN
     Route: 065
  6. ELIGARD [Suspect]
     Active Substance: LEUPROLIDE ACETATE
     Indication: PROSTATE CANCER
     Dosage: 45 MG, UNK
     Route: 058
     Dates: start: 20160126
  7. HJERTEMAGNYL                       /00228701/ [Concomitant]
     Active Substance: ASPIRIN\MAGNESIUM OXIDE
     Route: 065

REACTIONS (3)
  - Dyspnoea [Unknown]
  - Pulmonary embolism [Recovering/Resolving]
  - Walking disability [Unknown]

NARRATIVE: CASE EVENT DATE: 20160131
